FAERS Safety Report 8911005 (Version 1)
Quarter: 2012Q4

REPORT INFORMATION
  Report Type: 
  Country: ES (occurrence: ES)
  Receive Date: 20121116
  Receipt Date: 20121116
  Transmission Date: 20130627
  Serious: Yes (Hospitalization, Disabling, Other)
  Sender: FDA-Public Use
  Company Number: ES-ELI_LILLY_AND_COMPANY-ES201211003158

PATIENT
  Age: 76 Year
  Sex: Female

DRUGS (1)
  1. FORSTEO [Suspect]
     Dosage: UNK
     Dates: start: 20110309, end: 201209

REACTIONS (7)
  - Hip arthroplasty [Unknown]
  - Infection [Unknown]
  - Gait disturbance [Unknown]
  - Pain [Unknown]
  - Hypoaesthesia [Unknown]
  - Cardiovascular insufficiency [Unknown]
  - Osteoarthritis [Unknown]
